FAERS Safety Report 4591730-X (Version None)
Quarter: 2005Q1

REPORT INFORMATION
  Report Type: 
  Country: None (occurrence: None)
  Receive Date: 20050218
  Receipt Date: 20050208
  Transmission Date: 20050727
  Serious: No
  Sender: FDA-Public Use
  Company Number: 2005-00495

PATIENT
  Age: 25 Year
  Sex: Female

DRUGS (2)
  1. NIFEDIPINE [Suspect]
     Indication: TOCOLYSIS
     Dosage: SEE IMAGE
     Route: 048
  2. MAGNESIUM SULFATE [Suspect]
     Indication: TOCOLYSIS
     Dosage: 132 G (TOTAL DOSE) OVER 55 HOURS, INTRAVENOUS
     Route: 042

REACTIONS (2)
  - DRUG TOXICITY [None]
  - HYPOCALCAEMIA [None]
